FAERS Safety Report 5644232-3 (Version None)
Quarter: 2008Q1

REPORT INFORMATION
  Report Type: 
  Country: None (occurrence: None)
  Receive Date: 20080227
  Receipt Date: 20080227
  Transmission Date: 20080703
  Serious: Yes (Other)
  Sender: FDA-Public Use
  Company Number: None

PATIENT
  Age: 54 Year
  Sex: Male
  Weight: 98.4 kg

DRUGS (2)
  1. AZILECT [Suspect]
     Indication: PARKINSON'S DISEASE
     Dosage: 1 MG DAILY PO
     Route: 048
     Dates: start: 20080129, end: 20080210
  2. AZILECT [Suspect]
     Indication: PARKINSON'S DISEASE
     Dosage: 1 MG DAILY PO
     Route: 048
     Dates: start: 20080212, end: 20080220

REACTIONS (2)
  - DRUG INEFFECTIVE [None]
  - PALPITATIONS [None]
